FAERS Safety Report 7528456-6 (Version None)
Quarter: 2011Q2

REPORT INFORMATION
  Report Type: 
  Country: None (occurrence: None)
  Receive Date: 20110607
  Receipt Date: 20101221
  Transmission Date: 20111010
  Serious: No
  Sender: FDA-Public Use
  Company Number: US-ASTRAZENECA-2011SE01025

PATIENT
  Sex: Female

DRUGS (1)
  1. PRILOSEC OTC [Suspect]
     Indication: DYSPEPSIA
     Route: 048

REACTIONS (3)
  - DYSPEPSIA [None]
  - CONDITION AGGRAVATED [None]
  - NAUSEA [None]
